FAERS Safety Report 4360973-2 (Version None)
Quarter: 2004Q2

REPORT INFORMATION
  Report Type: 
  Country: None (occurrence: None)
  Receive Date: 20040517
  Receipt Date: 20040429
  Transmission Date: 20050107
  Serious: Yes (Hospitalization)
  Sender: FDA-Public Use
  Company Number: DSA_24339_2004

PATIENT
  Age: 72 Year
  Sex: Male

DRUGS (11)
  1. TEMESTA [Suspect]
     Dosage: 0.5 MG QD PO
     Route: 048
     Dates: end: 20031031
  2. BRONCHOKOD [Suspect]
     Dates: start: 20031027, end: 20031103
  3. ELISOR [Suspect]
     Dosage: 20 MG QD PO
  4. KARDEGIC    FRA [Suspect]
     Dosage: 75 MG QD PO
     Route: 048
  5. KERLONE [Suspect]
     Dosage: 20 MG QD PO
     Route: 048
  6. MOPRAL [Suspect]
     Dosage: 20 MG QD PO
     Route: 048
  7. ACETAMINOPHEN [Suspect]
     Dates: start: 20031027, end: 20031103
  8. TOPLEXIL [Suspect]
     Dates: start: 20031027, end: 20031103
  9. ATROVENT [Concomitant]
  10. ETIOVEN [Concomitant]
  11. VASTAREL [Concomitant]

REACTIONS (14)
  - ARTHRALGIA [None]
  - AUTOIMMUNE DISORDER [None]
  - CUTANEOUS LUPUS ERYTHEMATOSUS [None]
  - DERMATITIS BULLOUS [None]
  - DERMATITIS HERPETIFORMIS [None]
  - EOSINOPHILIA [None]
  - ERYTHEMA MULTIFORME [None]
  - GAMMA-GLUTAMYLTRANSFERASE INCREASED [None]
  - LYMPHADENOPATHY [None]
  - MOUTH ULCERATION [None]
  - PEMPHIGOID [None]
  - PEMPHIGUS [None]
  - TOXIC SKIN ERUPTION [None]
  - URTICARIA [None]
